FAERS Safety Report 22155436 (Version 1)
Quarter: 2023Q1

REPORT INFORMATION
  Report Type: Spontaneous
  Country: US (occurrence: US)
  Receive Date: 20230330
  Receipt Date: 20230330
  Transmission Date: 20230418
  Serious: Yes (Life-Threatening, Other)
  Sender: FDA-Public Use
  Company Number: US-PFIZER INC-PV202300058058

PATIENT
  Age: 67 Year
  Sex: Female

DRUGS (1)
  1. NIVESTYM [Suspect]
     Active Substance: FILGRASTIM-AAFI
     Dosage: 600 UG/ML, CYCLIC, (480MCG/0.8ML Q2 WEEK DOSING)

REACTIONS (2)
  - Colon cancer [Unknown]
  - Off label use [Unknown]
